FAERS Safety Report 5473569-6 (Version None)
Quarter: 2007Q4

REPORT INFORMATION
  Report Type: 
  Country: None (occurrence: None)
  Receive Date: 20071001
  Receipt Date: 20070423
  Transmission Date: 20080405
  Serious: Yes (Other)
  Sender: FDA-Public Use
  Company Number: US-ASTRAZENECA-2007UW07798

PATIENT
  Age: 64 Year
  Sex: Female

DRUGS (2)
  1. ARIMIDEX [Suspect]
     Route: 048
     Dates: start: 20030101
  2. TAMOXIFEN CITRATE [Suspect]
     Route: 048

REACTIONS (2)
  - OSTEOPENIA [None]
  - THROMBOPHLEBITIS SUPERFICIAL [None]
